FAERS Safety Report 14019181 (Version 1)
Quarter: 2017Q3

REPORT INFORMATION
  Report Type: Spontaneous
  Country: DK (occurrence: DK)
  Receive Date: 20170928
  Receipt Date: 20170928
  Transmission Date: 20171128
  Serious: Yes (Hospitalization)
  Sender: FDA-Public Use
  Company Number: DK-ACCORD-059301

PATIENT
  Age: 46 Year
  Sex: Female

DRUGS (1)
  1. DOCETAXEL. [Suspect]
     Active Substance: DOCETAXEL
     Indication: INTRADUCTAL PROLIFERATIVE BREAST LESION
     Route: 042
     Dates: start: 20140326, end: 20140716

REACTIONS (15)
  - Face oedema [Unknown]
  - Cognitive disorder [Unknown]
  - Leukopenia [Recovered/Resolved]
  - Pyrexia [Recovered/Resolved]
  - Accidental overdose [Unknown]
  - Diarrhoea [Unknown]
  - Lymphoedema [Not Recovered/Not Resolved]
  - Oral fungal infection [Recovering/Resolving]
  - Dizziness [Unknown]
  - Memory impairment [Unknown]
  - Pain in extremity [Recovering/Resolving]
  - Nerve injury [Recovering/Resolving]
  - Arthralgia [Recovering/Resolving]
  - Nervous system disorder [Unknown]
  - Brain injury [Unknown]

NARRATIVE: CASE EVENT DATE: 20140326
